FAERS Safety Report 25346127 (Version 2)
Quarter: 2025Q2

REPORT INFORMATION
  Report Type: Report from Study
  Country: HR (occurrence: HR)
  Receive Date: 20250522
  Receipt Date: 20250526
  Transmission Date: 20250716
  Serious: Yes (Other)
  Sender: ABBVIE
  Company Number: HR-ABBVIE-6286980

PATIENT
  Age: 65 Year
  Sex: Male

DRUGS (2)
  1. FOSCARBIDOPA\FOSLEVODOPA [Suspect]
     Active Substance: FOSCARBIDOPA\FOSLEVODOPA
     Indication: Parkinson^s disease
     Route: 058
     Dates: start: 20240910, end: 20250514
  2. FOSCARBIDOPA\FOSLEVODOPA [Suspect]
     Active Substance: FOSCARBIDOPA\FOSLEVODOPA
     Route: 058
     Dates: start: 202505, end: 202505

REACTIONS (3)
  - Application site inflammation [Recovered/Resolved]
  - Administration site cellulitis [Recovered/Resolved]
  - Malabsorption from administration site [Unknown]

NARRATIVE: CASE EVENT DATE: 20250101
